FAERS Safety Report 4330581-8 (Version None)
Quarter: 2004Q1

REPORT INFORMATION
  Report Type: 
  Country: None (occurrence: None)
  Receive Date: 20040329
  Receipt Date: 20040315
  Transmission Date: 20041129
  Serious: Yes (Hospitalization, Other)
  Sender: FDA-Public Use
  Company Number: 200410000BCC

PATIENT
  Age: 30 Year
  Sex: Male
  Weight: 68.0396 kg

DRUGS (1)
  1. ALKA SELTZER PLUS FLU [Suspect]
     Indication: NASOPHARYNGITIS
     Dosage: 1000 /4/30 MG, ONCE, ORAL
     Route: 048
     Dates: start: 20030125

REACTIONS (14)
  - CENTRAL NERVOUS SYSTEM INFECTION [None]
  - COMPLEX PARTIAL SEIZURES [None]
  - CONFUSIONAL STATE [None]
  - EYE SWELLING [None]
  - HEADACHE [None]
  - INFLUENZA LIKE ILLNESS [None]
  - LETHARGY [None]
  - LOSS OF CONSCIOUSNESS [None]
  - MEDICAL DEVICE COMPLICATION [None]
  - MUSCLE TWITCHING [None]
  - NYSTAGMUS [None]
  - TREMOR [None]
  - URETHRAL INJURY [None]
  - VIRAL INFECTION [None]
